FAERS Safety Report 7194139-8 (Version None)
Quarter: 2010Q4

REPORT INFORMATION
  Report Type: 
  Country: None (occurrence: None)
  Receive Date: 20101223
  Receipt Date: 20101214
  Transmission Date: 20110411
  Serious: Yes (Hospitalization)
  Sender: FDA-Public Use
  Company Number: JP-ASTRAZENECA-2010SE59397

PATIENT
  Age: 60 Year
  Sex: Female

DRUGS (3)
  1. IRESSA [Suspect]
     Indication: NON-SMALL CELL LUNG CANCER
     Route: 048
  2. IRESSA [Suspect]
     Route: 048
  3. MINOPHAGEN C [Concomitant]
     Dosage: DOSE UNKNOWN
     Route: 042

REACTIONS (1)
  - LIVER DISORDER [None]
